FAERS Safety Report 24824170 (Version 1)
Quarter: 2025Q1

REPORT INFORMATION
  Report Type: Spontaneous
  Country: US (occurrence: US)
  Receive Date: 20250109
  Receipt Date: 20250109
  Transmission Date: 20250409
  Serious: Yes (Other)
  Sender: RANBAXY
  Company Number: US-SUN PHARMACEUTICAL INDUSTRIES LTD-2024R1-487958

PATIENT
  Age: 86 Year
  Sex: Female

DRUGS (7)
  1. BUDESONIDE [Suspect]
     Active Substance: BUDESONIDE
     Indication: Colitis microscopic
     Route: 065
  2. MESALAMINE [Suspect]
     Active Substance: MESALAMINE
     Indication: Colitis microscopic
     Route: 065
  3. PREDNISONE [Suspect]
     Active Substance: PREDNISONE
     Indication: Colitis microscopic
     Route: 065
  4. ADALIMUMAB [Suspect]
     Active Substance: ADALIMUMAB
     Indication: Colitis microscopic
     Route: 065
  5. BISMUTH SUBSALICYLATE [Suspect]
     Active Substance: BISMUTH SUBSALICYLATE
     Indication: Colitis microscopic
     Route: 065
  6. CHOLESTYRAMINE [Suspect]
     Active Substance: CHOLESTYRAMINE
     Indication: Colitis microscopic
     Route: 065
  7. INFLIXIMAB [Suspect]
     Active Substance: INFLIXIMAB
     Indication: Colitis microscopic
     Route: 065

REACTIONS (1)
  - Therapy non-responder [Unknown]
